FAERS Safety Report 13082111 (Version 1)
Quarter: 2017Q1

REPORT INFORMATION
  Report Type: Report from Study
  Country: US (occurrence: US)
  Receive Date: 20170103
  Receipt Date: 20170103
  Transmission Date: 20170428
  Serious: Yes (Hospitalization)
  Sender: FDA-Public Use
  Company Number: US-EISAI MEDICAL RESEARCH-EC-2016-021178

PATIENT
  Sex: Female
  Weight: 67 kg

DRUGS (9)
  1. HYDROCODONE-ACETAMINOP [Concomitant]
  2. LENVIMA [Suspect]
     Active Substance: LENVATINIB
     Indication: THYROID CANCER
     Route: 048
     Dates: start: 20160916, end: 201612
  3. AMLODIPINE BESYLATE. [Concomitant]
     Active Substance: AMLODIPINE BESYLATE
  4. PRAVASTATIN SODIUM. [Concomitant]
     Active Substance: PRAVASTATIN SODIUM
  5. LISINOPRIL. [Concomitant]
     Active Substance: LISINOPRIL
  6. CARBAMAZEPINE ER [Concomitant]
     Active Substance: CARBAMAZEPINE
  7. HUMULIN 70/30 [Concomitant]
     Active Substance: INSULIN HUMAN
  8. ONDANSETRON ODT [Concomitant]
     Active Substance: ONDANSETRON
  9. MEMANTINE HCL [Concomitant]
     Active Substance: MEMANTINE

REACTIONS (7)
  - Contusion [Recovered/Resolved]
  - Fatigue [Unknown]
  - Constipation [Recovered/Resolved]
  - Hepatic function abnormal [Unknown]
  - Dysphagia [Recovered/Resolved]
  - Cough [Unknown]
  - Blood pressure decreased [Unknown]

NARRATIVE: CASE EVENT DATE: 2016
